FAERS Safety Report 17293457 (Version 4)
Quarter: 2020Q2

REPORT INFORMATION
  Report Type: Spontaneous
  Country: IT (occurrence: IT)
  Receive Date: 20200121
  Receipt Date: 20200626
  Transmission Date: 20200713
  Serious: Yes (Hospitalization)
  Sender: FDA-Public Use
  Company Number: NVSC2020IT010430

PATIENT
  Age: 84 Year
  Sex: Female

DRUGS (3)
  1. TAMSULOSIN HYDROCHLORIDE. [Suspect]
     Active Substance: TAMSULOSIN HYDROCHLORIDE
     Indication: PRODUCT ADMINISTRATION ERROR
     Dosage: 1 DF, TOTAL
     Route: 048
     Dates: start: 20191024, end: 20191024
  2. LARGACTIL [Suspect]
     Active Substance: CHLORPROMAZINE
     Indication: PRODUCT ADMINISTRATION ERROR
     Dosage: 100 MG, TOTAL
     Route: 048
     Dates: start: 20191024, end: 20191024
  3. BIPERIDEN HYDROCHLORIDE [Suspect]
     Active Substance: BIPERIDEN HYDROCHLORIDE
     Indication: PRODUCT ADMINISTRATION ERROR
     Dosage: 4 MG, TOTAL
     Route: 048
     Dates: start: 20191024, end: 20191024

REACTIONS (5)
  - Product administration error [Unknown]
  - Depressed level of consciousness [Recovering/Resolving]
  - Medication error [Recovering/Resolving]
  - Dizziness [Recovering/Resolving]
  - Vertigo [Recovering/Resolving]

NARRATIVE: CASE EVENT DATE: 20191024
